FAERS Safety Report 7772454 (Version 3)
Quarter: 2014Q2

REPORT INFORMATION
  Report Type: Spontaneous
  Country: US (occurrence: US)
  Receive Date: 20110125
  Receipt Date: 20140529
  Transmission Date: 20141212
  Serious: Yes (Hospitalization)
  Sender: FDA-Public Use
  Company Number: US-BAYER-2011-007548

PATIENT
  Age: 24 Year
  Sex: Female
  Weight: 100 kg

DRUGS (7)
  1. YAZ [Suspect]
     Indication: CONTRACEPTION
     Dosage: UNK
     Dates: start: 2007, end: 2008
  2. YAZ [Suspect]
     Indication: ACNE
  3. YAZ [Suspect]
     Indication: POLYCYSTIC OVARIES
  4. YASMIN [Suspect]
     Indication: CONTRACEPTION
     Dosage: UNK
     Dates: start: 2007, end: 2008
  5. YASMIN [Suspect]
     Indication: ACNE
  6. MINOCYCLINE HYDROCHLORIDE [Concomitant]
     Dosage: 100 MG, UNK
     Dates: start: 20080908
  7. DIFFERIN [Concomitant]
     Dosage: 0.3 %, UNK
     Dates: start: 20080908

REACTIONS (6)
  - Pulmonary embolism [None]
  - Deep vein thrombosis [Recovering/Resolving]
  - Thrombophlebitis superficial [None]
  - Deep vein thrombosis [None]
  - Pain [None]
  - Emotional distress [None]
